FAERS Safety Report 4951305-7 (Version None)
Quarter: 2006Q1

REPORT INFORMATION
  Report Type: 
  Country: None (occurrence: None)
  Receive Date: 20060317
  Receipt Date: 20060307
  Transmission Date: 20060701
  Serious: Yes (Hospitalization)
  Sender: FDA-Public Use
  Company Number: 222866

PATIENT
  Age: 32 Year
  Sex: Male

DRUGS (2)
  1. RAPTIVA [Suspect]
     Indication: PSORIASIS
     Dosage: 0.8 ML, 1/WEEK , SUBCUTANEOUS
     Route: 058
     Dates: start: 20051017, end: 20060201
  2. SORIATANE [Concomitant]

REACTIONS (2)
  - DIABETES MELLITUS [None]
  - STAPHYLOCOCCAL SEPSIS [None]
